FAERS Safety Report 22868907 (Version 10)
Quarter: 2025Q2

REPORT INFORMATION
  Report Type: Spontaneous
  Country: US (occurrence: US)
  Receive Date: 20230825
  Receipt Date: 20250515
  Transmission Date: 20250716
  Serious: No
  Sender: PFIZER
  Company Number: US-PFIZER INC-202300284578

PATIENT
  Age: 79 Year
  Sex: Male
  Weight: 97.506 kg

DRUGS (10)
  1. BOSULIF [Suspect]
     Active Substance: BOSUTINIB MONOHYDRATE
     Indication: Chronic myeloid leukaemia
     Dosage: 300 MG, DAILY (100 MG OF 3 TABLETS)
     Route: 048
     Dates: start: 202308
  2. BOSULIF [Suspect]
     Active Substance: BOSUTINIB MONOHYDRATE
     Dosage: 300 MG, DAILY (THREE 100MG TABLETS)
     Route: 048
     Dates: start: 2024, end: 20250108
  3. BOSULIF [Suspect]
     Active Substance: BOSUTINIB MONOHYDRATE
     Dosage: 300 MG, DAILY (TAKE 3 TABS DAILY)
     Route: 048
  4. ENTRESTO [Concomitant]
     Active Substance: SACUBITRIL\VALSARTAN
     Indication: Cardiac disorder
     Dosage: UNK UNK, 2X/DAY
     Route: 048
  5. FINASTERIDE [Concomitant]
     Active Substance: FINASTERIDE
     Indication: Blood cholesterol
     Dosage: 5 MG, 1X/DAY
     Route: 048
  6. FUROSEMIDE [Concomitant]
     Active Substance: FUROSEMIDE
  7. LEVOTHYROXINE [Concomitant]
     Active Substance: LEVOTHYROXINE
     Indication: Thyroid disorder
     Dosage: 0.075 MG, 1X/DAY
     Route: 048
  8. METOPROLOL [Concomitant]
     Active Substance: METOPROLOL
     Indication: Cardiac disorder
     Dosage: 100 MG, 1X/DAY
     Route: 048
  9. ROSUVASTATIN [Concomitant]
     Active Substance: ROSUVASTATIN
     Indication: Blood cholesterol
     Dosage: 20 MG, 1X/DAY
     Route: 048
  10. CENTRUM ADULTS [Concomitant]
     Indication: Hypovitaminosis
     Dosage: 1 DF, 1X/DAY (TABLET, ONCE A DAY)
     Route: 048

REACTIONS (2)
  - Ulcer [Unknown]
  - Arthralgia [Unknown]

NARRATIVE: CASE EVENT DATE: 20230801
